FAERS Safety Report 5992250-8 (Version None)
Quarter: 2008Q4

REPORT INFORMATION
  Report Type: 
  Country: None (occurrence: None)
  Receive Date: 20081202
  Receipt Date: 20080630
  Transmission Date: 20090506
  Serious: Yes (Other)
  Sender: FDA-Public Use
  Company Number: WAES 0807USA00241

PATIENT
  Age: 57 Year
  Sex: Female

DRUGS (2)
  1. FOSAMAX [Suspect]
     Indication: OSTEOPENIA
     Dosage: PO
     Route: 048
  2. HORMONES (UNSPECIFIED) [Concomitant]

REACTIONS (5)
  - FRACTURE [None]
  - GALLBLADDER DISORDER [None]
  - HERPES ZOSTER [None]
  - OSTEONECROSIS [None]
  - VARICOSE VEIN [None]
